FAERS Safety Report 4825041-1 (Version None)
Quarter: 2005Q4

REPORT INFORMATION
  Report Type: 
  Country: None (occurrence: None)
  Receive Date: 20051109
  Receipt Date: 20051109
  Transmission Date: 20060501
  Serious: Yes (Other)
  Sender: FDA-Public Use
  Company Number: None

PATIENT
  Age: 34 Year
  Sex: Male
  Weight: 90.2658 kg

DRUGS (5)
  1. HALDOL [Suspect]
     Indication: DEPRESSION
     Dosage: MORNING/NIGHT
     Dates: start: 20010101
  2. SEROQUEL [Suspect]
     Indication: DEPRESSION
     Dosage: MORNING/NIGHT
     Dates: start: 20010101
  3. ARCTANE [Concomitant]
  4. HALDOL [Concomitant]
  5. TRAZADONE WITH SEROQUEL [Concomitant]

REACTIONS (4)
  - BLOOD OESTROGEN ABNORMAL [None]
  - BLOOD PROLACTIN INCREASED [None]
  - BLOOD TESTOSTERONE ABNORMAL [None]
  - GYNAECOMASTIA [None]
